FAERS Safety Report 7681212-0 (Version None)
Quarter: 2011Q3

REPORT INFORMATION
  Report Type: 
  Country: None (occurrence: None)
  Receive Date: 20110812
  Receipt Date: 20110802
  Transmission Date: 20111222
  Serious: Yes (Other)
  Sender: FDA-Public Use
  Company Number: US-ELI_LILLY_AND_COMPANY-US201108000693

PATIENT
  Age: 66 Year
  Sex: Female

DRUGS (3)
  1. TRICOR [Concomitant]
  2. JANUMET [Concomitant]
     Indication: DIABETES MELLITUS
  3. BYETTA [Suspect]
     Indication: TYPE 2 DIABETES MELLITUS
     Route: 058

REACTIONS (1)
  - PANCREATITIS [None]
